FAERS Safety Report 10794700 (Version 1)
Quarter: 2015Q1

REPORT INFORMATION
  Report Type: Report from Study
  Country: US (occurrence: US)
  Receive Date: 20150213
  Receipt Date: 20150213
  Transmission Date: 20150721
  Serious: Yes (Hospitalization)
  Sender: FDA-Public Use
  Company Number: US-ACTELION-A-US2014-98887

PATIENT
  Age: 54 Year
  Sex: Female

DRUGS (2)
  1. TRACLEER [Suspect]
     Active Substance: BOSENTAN\BOSENTAN MONOHYDRATE
     Indication: PULMONARY ARTERIAL HYPERTENSION
     Dosage: 125 MG, UNK
     Route: 048
     Dates: start: 20110513
  2. TRACLEER [Suspect]
     Active Substance: BOSENTAN\BOSENTAN MONOHYDRATE
     Dosage: UNK
     Route: 048
     Dates: start: 200301, end: 2012

REACTIONS (8)
  - Anaemia [Unknown]
  - Transfusion [Unknown]
  - Mineral supplementation [Unknown]
  - Drug dose omission [Unknown]
  - Haemoglobin decreased [Not Recovered/Not Resolved]
  - Oesophageal haemorrhage [Unknown]
  - Gastrointestinal haemorrhage [Unknown]
  - Influenza [Unknown]

NARRATIVE: CASE EVENT DATE: 201405
